FAERS Safety Report 17250869 (Version 1)
Quarter: 2020Q1

REPORT INFORMATION
  Report Type: Spontaneous
  Country: DK (occurrence: DK)
  Receive Date: 20200109
  Receipt Date: 20200109
  Transmission Date: 20200409
  Serious: Yes (Life-Threatening, Hospitalization)
  Sender: FDA-Public Use
  Company Number: DK-TEVA-2020-DK-1164036

PATIENT
  Age: 38 Year
  Sex: Female

DRUGS (4)
  1. ATORVASTATIN TEVA [Concomitant]
     Active Substance: ATORVASTATIN
     Indication: CARDIOVASCULAR EVENT PROPHYLAXIS
     Dosage: DOSE : 80 MG
     Route: 048
     Dates: start: 20160309
  2. VERALOC RETARD [Concomitant]
     Indication: THROMBOSIS PROPHYLAXIS
     Dosage: DOSE : 200 MG
     Route: 048
     Dates: start: 20190816
  3. SUMATRIPTAN TEVA [Suspect]
     Active Substance: SUMATRIPTAN
     Indication: MIGRAINE
     Dosage: UNIT DOSE : 100 MILLIGRAM
     Route: 048
     Dates: start: 20191104, end: 20191204
  4. HJERTEMAGNYL [Concomitant]
     Indication: THROMBOSIS PROPHYLAXIS
     Dosage: UNIT DOSE : 75 MG
     Route: 048
     Dates: start: 20160309

REACTIONS (2)
  - Angina pectoris [Recovered/Resolved]
  - Arteriospasm coronary [Recovered/Resolved]

NARRATIVE: CASE EVENT DATE: 20191205
